FAERS Safety Report 6984961-2 (Version None)
Quarter: 2010Q3

REPORT INFORMATION
  Report Type: 
  Country: None (occurrence: None)
  Receive Date: 20100915
  Receipt Date: 20100906
  Transmission Date: 20110219
  Serious: Yes (Other)
  Sender: FDA-Public Use
  Company Number: GB-JNJCH-2010016966

PATIENT
  Sex: Male

DRUGS (3)
  1. CETIRIZINE HCL [Suspect]
     Indication: SEASONAL ALLERGY
     Dosage: TEXT:10 MG QD
     Route: 065
  2. CETIRIZINE HCL [Suspect]
     Dosage: TEXT:10 MG QD
     Route: 065
     Dates: start: 20100101, end: 20100101
  3. CETIRIZINE HCL [Suspect]
     Dosage: TEXT:10 ML QD
     Route: 048
     Dates: start: 20100401, end: 20100719

REACTIONS (1)
  - ALOPECIA [None]
